FAERS Safety Report 7422919-X (Version None)
Quarter: 2011Q2

REPORT INFORMATION
  Report Type: 
  Country: None (occurrence: None)
  Receive Date: 20110411
  Receipt Date: 20110404
  Transmission Date: 20111010
  Serious: Yes (Other)
  Sender: FDA-Public Use
  Company Number: AVE_02070_2011

PATIENT
  Age: 68 Year
  Sex: Female

DRUGS (4)
  1. CLONIDINE [Suspect]
     Indication: BLOOD PRESSURE INADEQUATELY CONTROLLED
     Dosage: (0.3 MG QD, VIA 1/WEEKLY PATCH TRANSDERMAL)
     Route: 062
  2. CLONIDINE [Suspect]
     Indication: HORMONE LEVEL ABNORMAL
     Dosage: (0.3 MG QD, VIA 1/WEEKLY PATCH TRANSDERMAL)
     Route: 062
  3. PRAVASTATIN [Concomitant]
  4. LISINOPRIL [Concomitant]

REACTIONS (11)
  - NIGHT SWEATS [None]
  - POOR QUALITY DRUG ADMINISTERED [None]
  - FLUSHING [None]
  - PALPITATIONS [None]
  - FEELING HOT [None]
  - BLOOD PRESSURE INCREASED [None]
  - INSOMNIA [None]
  - DRY MOUTH [None]
  - SYNCOPE [None]
  - DRUG INEFFECTIVE [None]
  - MALAISE [None]
